FAERS Safety Report 9587438 (Version 4)
Quarter: 2014Q2

REPORT INFORMATION
  Report Type: Report from Study
  Country: LB (occurrence: LB)
  Receive Date: 20131003
  Receipt Date: 20140423
  Transmission Date: 20141212
  Serious: Yes (Death, Hospitalization, Other)
  Sender: FDA-Public Use
  Company Number: PHHY2013LB109394

PATIENT
  Sex: Female

DRUGS (10)
  1. TASIGNA [Suspect]
     Indication: CHRONIC MYELOID LEUKAEMIA
     Dosage: 800 MG, DAILY
     Route: 048
     Dates: start: 20130918, end: 201310
  2. MONOCINQUE [Suspect]
     Dosage: 1 DF, QD
  3. ZOCOR [Suspect]
     Dosage: 1 DF, QD
  4. BETASERC [Suspect]
     Dosage: 1 DF, QD
  5. ATARAX [Suspect]
     Dosage: 1 DF, QD
  6. HEPAREX [Concomitant]
     Dosage: 1 DF, QOD
  7. ASPICORE [Concomitant]
     Dosage: 1 DF, QD
  8. CALTRATE [Concomitant]
     Dosage: 1 DF, QD
  9. NEXIUM//ESOMEPRAZOLE SODIUM [Concomitant]
     Dosage: 1 DF, QD
  10. AERUS [Concomitant]
     Dosage: 1 DF, QD

REACTIONS (7)
  - Death [Fatal]
  - Delusion [Recovering/Resolving]
  - Terminal state [Unknown]
  - Anaemia [Recovering/Resolving]
  - Pyrexia [Recovering/Resolving]
  - Leukocytosis [Unknown]
  - Food interaction [Unknown]
